FAERS Safety Report 10043711 (Version 1)
Quarter: 2014Q1

REPORT INFORMATION
  Report Type: Spontaneous
  Country: GB (occurrence: GB)
  Receive Date: 20140328
  Receipt Date: 20140328
  Transmission Date: 20141002
  Serious: Yes (Other)
  Sender: FDA-Public Use
  Company Number: GB-MERCK-1403GBR013131

PATIENT
  Age: 76 Year
  Sex: Male
  Weight: 70 kg

DRUGS (11)
  1. SITAGLIPTIN PHOSPHATE [Suspect]
     Indication: TYPE 2 DIABETES MELLITUS
     Dosage: 100 MG, QD
     Route: 048
     Dates: start: 20140307, end: 20140317
  2. AMLODIPINE [Concomitant]
  3. ASPIRIN [Concomitant]
  4. BISOPROLOL [Concomitant]
  5. FINASTERIDE [Concomitant]
  6. LOSARTAN POTASSIUM [Concomitant]
  7. METFORMIN [Concomitant]
  8. SALMETEROL XINAFOATE [Concomitant]
  9. SIMVASTATIN [Concomitant]
  10. TAMSULOSIN HYDROCHLORIDE [Concomitant]
  11. TIOTROPIUM BROMIDE [Concomitant]

REACTIONS (1)
  - Cardiac failure [Not Recovered/Not Resolved]
